FAERS Safety Report 5078711-7 (Version None)
Quarter: 2006Q3

REPORT INFORMATION
  Report Type: 
  Country: None (occurrence: None)
  Receive Date: 20060809
  Receipt Date: 20060809
  Transmission Date: 20061208
  Serious: No
  Sender: FDA-Public Use
  Company Number: None

PATIENT
  Age: 62 Year
  Sex: Male
  Weight: 108.4097 kg

DRUGS (1)
  1. DURAGESIC-75 [Suspect]
     Indication: ARTHRITIS
     Dosage: 75 MG/M TO FLANK
     Dates: start: 20050101

REACTIONS (1)
  - INADEQUATE ANALGESIA [None]
